FAERS Safety Report 4957778-8 (Version None)
Quarter: 2006Q1

REPORT INFORMATION
  Report Type: 
  Country: None (occurrence: None)
  Receive Date: 20060324
  Receipt Date: 20060310
  Transmission Date: 20060701
  Serious: Yes (Other)
  Sender: FDA-Public Use
  Company Number: 2006P1000170

PATIENT
  Age: 63 Year
  Sex: Male

DRUGS (5)
  1. RETEPLASE (RETEPLASE) [Suspect]
     Indication: ACUTE MYOCARDIAL INFARCTION
     Dosage: IV
     Route: 042
  2. HEPARIN SODIUM [Suspect]
     Indication: ACUTE MYOCARDIAL INFARCTION
  3. AGGRASTAT [Suspect]
     Indication: PAIN
     Dates: start: 20050630
  4. ASPIRIN [Suspect]
     Indication: ACUTE MYOCARDIAL INFARCTION
  5. METOPROLOL TARTRATE [Concomitant]

REACTIONS (4)
  - GINGIVAL BLEEDING [None]
  - HAEMOPTYSIS [None]
  - MEDICATION ERROR [None]
  - WOUND HAEMORRHAGE [None]
